FAERS Safety Report 18009014 (Version 2)
Quarter: 2021Q3

REPORT INFORMATION
  Report Type: Spontaneous
  Country: US (occurrence: US)
  Receive Date: 20200710
  Receipt Date: 20210806
  Transmission Date: 20211014
  Serious: Yes (Hospitalization)
  Sender: FDA-Public Use
  Company Number: US-SAOL THERAPEUTICS-2020SAO00149

PATIENT
  Age: 34 Year
  Sex: Male

DRUGS (5)
  1. LIORESAL [Suspect]
     Active Substance: BACLOFEN
     Dosage: 626 ?G, \DAY ^NEW SYNCHROMED II PUMP^
     Route: 037
  2. LIORESAL [Suspect]
     Active Substance: BACLOFEN
     Dosage: 600 ?G, \DAY; AS OF 25?MAY?2020
     Route: 037
  3. VALIUM [Concomitant]
     Active Substance: DIAZEPAM
  4. LIORESAL [Suspect]
     Active Substance: BACLOFEN
     Indication: MUSCLE SPASTICITY
     Dosage: 625.9 ?G, \DAY ^OLD SYNCHROMED II PUMP^
     Route: 037
  5. ORAL BACLOFEN [Concomitant]
     Active Substance: BACLOFEN
     Route: 048

REACTIONS (2)
  - Drug withdrawal syndrome [Recovered/Resolved]
  - Complication associated with device [Recovered/Resolved]

NARRATIVE: CASE EVENT DATE: 20200525
